FAERS Safety Report 6550507-6 (Version None)
Quarter: 2010Q1

REPORT INFORMATION
  Report Type: 
  Country: None (occurrence: None)
  Receive Date: 20100125
  Receipt Date: 20100119
  Transmission Date: 20100710
  Serious: Yes (Hospitalization)
  Sender: FDA-Public Use
  Company Number: B0613469A

PATIENT
  Sex: Male
  Weight: 56 kg

DRUGS (2)
  1. RELENZA [Suspect]
     Indication: INFLUENZA
     Dosage: 10MG TWICE PER DAY
     Route: 055
     Dates: start: 20091031, end: 20091101
  2. FLUID REPLACEMENT THERAPY [Concomitant]
     Route: 065

REACTIONS (6)
  - ABNORMAL BEHAVIOUR [None]
  - ACETABULUM FRACTURE [None]
  - FACIAL BONES FRACTURE [None]
  - FALL [None]
  - LACERATION [None]
  - MULTIPLE INJURIES [None]
